FAERS Safety Report 16993508 (Version 3)
Quarter: 2020Q4

REPORT INFORMATION
  Report Type: Spontaneous
  Country: JP (occurrence: JP)
  Receive Date: 20191105
  Receipt Date: 20201104
  Transmission Date: 20210113
  Serious: Yes (Hospitalization)
  Sender: FDA-Public Use
  Company Number: JP-BEH-2019108863

PATIENT
  Age: 71 Year
  Sex: Female
  Weight: 76.5 kg

DRUGS (6)
  1. PREDONINE [Concomitant]
     Active Substance: PREDNISOLONE
     Dosage: 5 TABLETS(3 TABLETS  MORNING/2 TABLETS NOON)TAPERED TO 1 TABLET DAILY
     Route: 048
     Dates: start: 20190913
  2. OMEPRAZOLE. [Concomitant]
     Active Substance: OMEPRAZOLE
     Dosage: 1 TABLET DAILY IN MORNING QD
     Route: 048
     Dates: start: 20190706, end: 20200227
  3. PREDONINE [Concomitant]
     Active Substance: PREDNISOLONE
     Indication: CHRONIC INFLAMMATORY DEMYELINATING POLYRADICULONEUROPATHY
     Dosage: 5 TABLETS(3 TABLETS MORNING/2 TABLETS NOON)TAPERED TO 1 TABLET DAILY
     Route: 048
     Dates: start: 20190706
  4. HIZENTRA [Suspect]
     Active Substance: HUMAN IMMUNOGLOBULIN G
     Dosage: UNK
     Route: 058
  5. HIZENTRA [Suspect]
     Active Substance: HUMAN IMMUNOGLOBULIN G
     Indication: CHRONIC INFLAMMATORY DEMYELINATING POLYRADICULONEUROPATHY
     Dosage: 4VIALS(80ML) 50ML/HR AND 4 VIALS(80ML) 40ML/HR
     Route: 058
     Dates: start: 20190716, end: 20200324
  6. PREDONINE [Concomitant]
     Active Substance: PREDNISOLONE
     Dosage: 5 TABLETS(3 TABLETS  MORNING/2 TABLETS NOON)TAPERED TO 1 TABLET DAILY
     Route: 048
     Dates: start: 20200227

REACTIONS (2)
  - Effusion [Recovered/Resolved]
  - Oedema peripheral [Recovered/Resolved]

NARRATIVE: CASE EVENT DATE: 201908
